FAERS Safety Report 12924388 (Version 1)
Quarter: 2016Q4

REPORT INFORMATION
  Report Type: Spontaneous
  Country: JP (occurrence: JP)
  Receive Date: 20161109
  Receipt Date: 20161109
  Transmission Date: 20170207
  Serious: Yes (Hospitalization)
  Sender: FDA-Public Use
  Company Number: JP-EISAI MEDICAL RESEARCH-EC-2016-022007

PATIENT
  Sex: Female

DRUGS (3)
  1. TOPINA [Concomitant]
     Active Substance: TOPIRAMATE
     Indication: PRODUCT USED FOR UNKNOWN INDICATION
     Dosage: UNKNOWN
     Route: 065
  2. FYCOMPA [Suspect]
     Active Substance: PERAMPANEL
     Indication: EPILEPSY
     Route: 048
     Dates: start: 2016, end: 2016
  3. LAMICTAL [Concomitant]
     Active Substance: LAMOTRIGINE
     Indication: PRODUCT USED FOR UNKNOWN INDICATION
     Dosage: UNKNOWN
     Route: 065

REACTIONS (12)
  - Tremor [Not Recovered/Not Resolved]
  - Dizziness [Unknown]
  - Constipation [Unknown]
  - Decreased appetite [Unknown]
  - Yawning [Unknown]
  - Malocclusion [Not Recovered/Not Resolved]
  - Mental disorder [Unknown]
  - Headache [Unknown]
  - Foaming at mouth [Unknown]
  - Urinary incontinence [Unknown]
  - Rash [Unknown]
  - Seizure [Unknown]

NARRATIVE: CASE EVENT DATE: 2016
